FAERS Safety Report 19461609 (Version 2)
Quarter: 2021Q3

REPORT INFORMATION
  Report Type: Spontaneous
  Country: AU (occurrence: AU)
  Receive Date: 20210625
  Receipt Date: 20210708
  Transmission Date: 20211014
  Serious: Yes (Hospitalization, Other)
  Sender: FDA-Public Use
  Company Number: AU-PFIZER INC-2021691363

PATIENT
  Age: 72 Year
  Sex: Female

DRUGS (5)
  1. FUROSEMIDE. [Concomitant]
     Active Substance: FUROSEMIDE
     Indication: HYPERTENSION
     Dosage: 500 MG, 2X/DAY
  2. SALBUTAMOL [Concomitant]
     Active Substance: ALBUTEROL
     Indication: ASTHMA
     Dosage: UNK
  3. PRAZOSIN. [Concomitant]
     Active Substance: PRAZOSIN
     Indication: HYPERTENSION
     Dosage: UNK
  4. CIPROFLOXACIN. [Suspect]
     Active Substance: CIPROFLOXACIN
     Indication: PNEUMONIA
     Dosage: 500 MG, 2X/DAY, WAS ON CIPROFLOXACIN FOR LESS THAN 7 DAYS
  5. FLUTICASONE/VILANTEROL [Concomitant]
     Active Substance: FLUTICASONE FUROATE\VILANTEROL TRIFENATATE
     Indication: ASTHMA
     Dosage: UNK
     Route: 055

REACTIONS (5)
  - Tendon rupture [Unknown]
  - Tendon disorder [Unknown]
  - Haematoma [Unknown]
  - Deep vein thrombosis [Unknown]
  - Pulmonary embolism [Unknown]
